FAERS Safety Report 8434439-4 (Version None)
Quarter: 2012Q2

REPORT INFORMATION
  Report Type: 
  Country: None (occurrence: None)
  Receive Date: 20120614
  Receipt Date: 20120608
  Transmission Date: 20120825
  Serious: Yes (Other)
  Sender: FDA-Public Use
  Company Number: US-AMGEN-USASP2011021320

PATIENT
  Sex: Female
  Weight: 87.528 kg

DRUGS (27)
  1. NPLATE [Suspect]
  2. NPLATE [Suspect]
  3. ARANESP [Concomitant]
  4. MTV [Concomitant]
  5. ATENOLOL [Concomitant]
     Dosage: 50 MG, UNK
  6. ARANESP [Concomitant]
     Indication: RENAL FAILURE
     Dosage: 100 MG, Q2WK
     Route: 058
     Dates: start: 20090108, end: 20110224
  7. ARANESP [Concomitant]
  8. GLIPIZIDE [Concomitant]
     Dosage: 10 MG, BID
  9. NPLATE [Suspect]
  10. NPLATE [Suspect]
  11. ARANESP [Concomitant]
     Indication: ANAEMIA
  12. NPLATE [Suspect]
     Indication: IDIOPATHIC THROMBOCYTOPENIC PURPURA
     Dosage: 688 MUG, UNK
     Route: 058
     Dates: start: 20100211, end: 20100513
  13. NPLATE [Suspect]
  14. FOSAMAX [Concomitant]
     Dosage: 70 MG, UNK
  15. FERROUS SULFATE TAB [Concomitant]
     Dosage: 65 MG, TID
  16. NPLATE [Suspect]
  17. CRESTOR [Concomitant]
  18. VOLTAREN [Concomitant]
     Dosage: 1 %, TID
  19. NPLATE [Suspect]
  20. ARANESP [Concomitant]
  21. ARANESP [Concomitant]
  22. TRAMADOL HCL [Concomitant]
     Dosage: 50 MG, PRN
  23. ADOS [Concomitant]
  24. NPLATE [Suspect]
  25. ARANESP [Concomitant]
  26. LASIX [Concomitant]
     Dosage: 40 MG, UNK
  27. VITAMIN D                          /00318501/ [Concomitant]
     Dosage: 1.25 UNK, UNK

REACTIONS (2)
  - THERAPEUTIC RESPONSE DECREASED [None]
  - HEADACHE [None]
